FAERS Safety Report 5477059-6 (Version None)
Quarter: 2007Q4

REPORT INFORMATION
  Report Type: 
  Country: None (occurrence: None)
  Receive Date: 20071002
  Receipt Date: 20071002
  Transmission Date: 20080405
  Serious: Yes (Other)
  Sender: FDA-Public Use
  Company Number: None

PATIENT
  Age: 30 Year
  Sex: Male
  Weight: 99.7913 kg

DRUGS (1)
  1. MEFLOQUINE HCL [Suspect]
     Indication: MALARIA PROPHYLAXIS
     Dosage: 252MG TWICE PO
     Route: 048
     Dates: start: 20070929, end: 20071001

REACTIONS (3)
  - FEAR [None]
  - FEELING ABNORMAL [None]
  - NIGHTMARE [None]
